FAERS Safety Report 19653460 (Version 1)
Quarter: 2021Q3

REPORT INFORMATION
  Report Type: Spontaneous
  Country: US (occurrence: US)
  Receive Date: 20210804
  Receipt Date: 20210804
  Transmission Date: 20211014
  Serious: Yes (Hospitalization, Other)
  Sender: FDA-Public Use
  Company Number: US-AUROBINDO-AUR-APL-2021-032902

PATIENT
  Age: 40 Year
  Sex: Female

DRUGS (2)
  1. METHOTREXATE. [Suspect]
     Active Substance: METHOTREXATE
     Indication: B-CELL PROLYMPHOCYTIC LEUKAEMIA
     Dosage: 250 MILLIGRAM (ON DAY 1)
     Route: 042
  2. VINCRISTINE [Concomitant]
     Active Substance: VINCRISTINE
     Indication: B-CELL PROLYMPHOCYTIC LEUKAEMIA
     Dosage: ON DAY 1
     Route: 042

REACTIONS (19)
  - Toxicity to various agents [Unknown]
  - Acute kidney injury [Unknown]
  - Hepatitis acute [Recovered/Resolved]
  - Pancytopenia [Recovered/Resolved]
  - Myelosuppression [Recovered/Resolved]
  - Leukopenia [Recovered/Resolved]
  - Tachycardia [Unknown]
  - Anaemia [Unknown]
  - Stomatitis [Unknown]
  - Diarrhoea [Unknown]
  - Neutropenia [Recovered/Resolved]
  - Mucosal inflammation [Unknown]
  - Skin toxicity [Unknown]
  - Face oedema [Unknown]
  - Skin exfoliation [Unknown]
  - Drug-induced liver injury [Recovered/Resolved]
  - Intertrigo [Recovered/Resolved]
  - Odynophagia [Unknown]
  - Vomiting [Unknown]
